FAERS Safety Report 4801585-3 (Version None)
Quarter: 2005Q4

REPORT INFORMATION
  Report Type: 
  Country: None (occurrence: None)
  Receive Date: 20051012
  Receipt Date: 20050629
  Transmission Date: 20060501
  Serious: Yes (Other)
  Sender: FDA-Public Use
  Company Number: 2005090452

PATIENT
  Age: 61 Year
  Sex: Male
  Weight: 55.5 kg

DRUGS (4)
  1. AZULFIDINE EN-TABS [Suspect]
     Indication: RHEUMATOID ARTHRITIS
     Dosage: 1000 MG (1 IN 1 D); ORAL
     Route: 048
     Dates: start: 20041215, end: 20050518
  2. DICLOFENAC SODIUM [Concomitant]
  3. FAMOTIDINE [Concomitant]
  4. PL (PYRIDOXAL) [Concomitant]

REACTIONS (1)
  - INTERSTITIAL LUNG DISEASE [None]
